FAERS Safety Report 9693414 (Version 1)
Quarter: 2013Q4

REPORT INFORMATION
  Report Type: Spontaneous
  Country: DE (occurrence: DE)
  Receive Date: 20131118
  Receipt Date: 20131118
  Transmission Date: 20140711
  Serious: Yes (Other)
  Sender: FDA-Public Use
  Company Number: DE-ELI_LILLY_AND_COMPANY-DE201311002444

PATIENT
  Sex: Female

DRUGS (1)
  1. ALIMTA [Suspect]
     Indication: BREAST CANCER
     Route: 042

REACTIONS (3)
  - Uterine cancer [Unknown]
  - Lung adenocarcinoma [Unknown]
  - Off label use [Unknown]
